FAERS Safety Report 7837621-X (Version None)
Quarter: 2011Q4

REPORT INFORMATION
  Report Type: 
  Country: None (occurrence: None)
  Receive Date: 20111024
  Receipt Date: 20110418
  Transmission Date: 20120403
  Serious: No
  Sender: FDA-Public Use
  Company Number: US-ABBOTT-11P-163-0720878-00

PATIENT
  Sex: Female
  Weight: 47.67 kg

DRUGS (2)
  1. FEMARA [Suspect]
     Indication: DRUG THERAPY
     Dosage: EVERY NIGHT
     Route: 048
     Dates: start: 20110101
  2. LUPRON DEPOT [Suspect]
     Indication: ENDOMETRIOSIS
     Dates: start: 20110101

REACTIONS (1)
  - MIGRAINE [None]
